FAERS Safety Report 5789235-3 (Version None)
Quarter: 2008Q2

REPORT INFORMATION
  Report Type: 
  Country: None (occurrence: None)
  Receive Date: 20080626
  Receipt Date: 20080104
  Transmission Date: 20081010
  Serious: No
  Sender: FDA-Public Use
  Company Number: US-ASTRAZENECA-2008UW00341

PATIENT
  Age: 10 Month
  Sex: Female

DRUGS (1)
  1. PULMICORT RESPULES [Suspect]
     Indication: ASTHMA
     Route: 055
     Dates: start: 20071001

REACTIONS (4)
  - EAR PAIN [None]
  - MOOD SWINGS [None]
  - RESPIRATORY SYNCYTIAL VIRUS INFECTION [None]
  - THIRST [None]
